FAERS Safety Report 7536189-5 (Version None)
Quarter: 2011Q2

REPORT INFORMATION
  Report Type: 
  Country: None (occurrence: None)
  Receive Date: 20110609
  Receipt Date: 20110606
  Transmission Date: 20111010
  Serious: No
  Sender: FDA-Public Use
  Company Number: US-PFIZER INC-2011113872

PATIENT
  Sex: Female
  Weight: 73 kg

DRUGS (6)
  1. PREDNISONE [Concomitant]
     Dosage: UNK
     Dates: start: 20080101
  2. PLAVIX [Suspect]
     Indication: ATRIAL FIBRILLATION
     Dosage: 75 MG, DAILY
  3. AMIODARONE HCL [Suspect]
     Dosage: UNK
  4. AMLODIPINE BESILATE [Suspect]
     Dosage: UNK
  5. LISINOPRIL [Suspect]
     Dosage: UNK
  6. SYNTHROID [Concomitant]

REACTIONS (3)
  - HYPERHIDROSIS [None]
  - FEELING HOT [None]
  - MALAISE [None]
